FAERS Safety Report 18310569 (Version 1)
Quarter: 2020Q3

REPORT INFORMATION
  Report Type: Spontaneous
  Country: CN (occurrence: CN)
  Receive Date: 20200925
  Receipt Date: 20200925
  Transmission Date: 20201103
  Serious: Yes (Other)
  Sender: FDA-Public Use
  Company Number: CN-BAXTER-2020BAX019383

PATIENT
  Age: 3 Year
  Sex: Female
  Weight: 15 kg

DRUGS (7)
  1. 0.9% SODIUM CHLORIDE INJECTION [Suspect]
     Active Substance: SODIUM CHLORIDE
     Indication: MEDICATION DILUTION
     Dosage: 0.9% SODIUM CHLORIDE INJECTION 1ML + CYTARABINE FOR INJECTION 0.025G
     Route: 058
     Dates: start: 20200818, end: 20200821
  2. 0.9% SODIUM CHLORIDE INJECTION [Suspect]
     Active Substance: SODIUM CHLORIDE
     Dosage: 0.9% SODIUM CHLORIDE INJECTION 1ML + CYTARABINE FOR INJECTION 0.025G
     Route: 058
     Dates: start: 20200825, end: 20200827
  3. CYTARABINE. [Suspect]
     Active Substance: CYTARABINE
     Indication: ACUTE LYMPHOCYTIC LEUKAEMIA
     Dosage: 0.9% SODIUM CHLORIDE INJECTION 1ML + CYTARABINE FOR INJECTION 0.025G
     Route: 058
     Dates: start: 20200818, end: 20200821
  4. ENDOXAN [Suspect]
     Active Substance: CYCLOPHOSPHAMIDE
     Indication: ACUTE LYMPHOCYTIC LEUKAEMIA
     Dosage: (4:1) GLUCOSE AND SODIUM CHLORIDE INJECTION 250ML + CYCLOPHOSPHAMIDE FOR INJECTION 0.66G
     Route: 041
     Dates: start: 20200818, end: 20200818
  5. CYTARABINE. [Suspect]
     Active Substance: CYTARABINE
     Dosage: 0.9% SODIUM CHLORIDE INJECTION 1ML + CYTARABINE FOR INJECTION 0.025G
     Route: 058
     Dates: start: 20200825, end: 20200827
  6. MERCAPTOPURINE. [Suspect]
     Active Substance: MERCAPTOPURINE
     Indication: ACUTE LYMPHOCYTIC LEUKAEMIA
     Dosage: DOSAGE FORM: TABLET, FREQUENCY: EVERY NIGHT [QN]
     Route: 048
     Dates: start: 20200818, end: 20200901
  7. 5% GLUCOSE AND 0.9% SODIUM CHLORIDE INJECTION [Suspect]
     Active Substance: DEXTROSE\SODIUM CHLORIDE
     Indication: MEDICATION DILUTION
     Dosage: (4:1) GLUCOSE AND SODIUM CHLORIDE INJECTION 250ML + CYCLOPHOSPHAMIDE FOR INJECTION 0.66G
     Route: 041
     Dates: start: 20200818, end: 20200818

REACTIONS (1)
  - Myelosuppression [Recovering/Resolving]

NARRATIVE: CASE EVENT DATE: 20200823
